FAERS Safety Report 6814607 (Version 2)
Quarter: 2020Q3

REPORT INFORMATION
  Report Type: Report from Study
  Country: US (occurrence: US)
  Receive Date: 20081118
  Receipt Date: 20081216
  Transmission Date: 20201105
  Serious: Yes (Hospitalization)
  Sender: FDA-Public Use
  Company Number: US-WYE-H06793808

PATIENT
  Age: 48 Year
  Sex: Male
  Weight: 79.7 kg

DRUGS (13)
  1. AVASTIN [Suspect]
     Active Substance: BEVACIZUMAB
     Indication: RENAL CANCER
     Route: 042
     Dates: start: 20080903, end: 20081107
  2. MULTIVITAMINS [Concomitant]
     Active Substance: VITAMINS
     Dosage: NOT PROVIDED
     Route: 065
  3. INTERFERON ALFA NOS [Suspect]
     Active Substance: INTERFERON ALFA-2A OR INTERFERON ALFA-2B
     Indication: RENAL CANCER
     Dosage: 9 MILLION UNITS THREE TIMES PER WEEK
     Route: 058
     Dates: start: 20080903, end: 20081107
  4. ZOMETA [Concomitant]
     Active Substance: ZOLEDRONIC ACID
     Dosage: DOSE NOT PROVIDED, TAKEN MONTHLY
     Route: 065
     Dates: start: 200806
  5. ACETAMINOPHEN. [Concomitant]
     Active Substance: ACETAMINOPHEN
     Indication: MYALGIA
     Dosage: NOT PROVIDED
     Route: 065
     Dates: start: 20080901
  6. CONTAC [Concomitant]
     Active Substance: ACETAMINOPHEN\PHENYLEPHRINE HYDROCHLORIDE
     Indication: SINUSITIS
     Dosage: NOT PROVIDED
     Route: 065
     Dates: start: 20081025
  7. OXYCODONE [Concomitant]
     Active Substance: OXYCODONE
     Indication: BACK PAIN
     Dosage: 5 MG, FREQUENCY NOT PROVIDED
     Route: 065
     Dates: start: 2007
  8. CLARITIN?D NOS [Concomitant]
     Active Substance: LORATADINE\PSEUDOEPHEDRINE SULFATE
     Indication: MITE ALLERGY
     Route: 048
     Dates: start: 2006
  9. TRICOR [Concomitant]
     Active Substance: FENOFIBRATE
     Indication: BLOOD TRIGLYCERIDES INCREASED
     Dosage: 145 MG, FREQUENCY NOT PROVIDED
     Route: 065
     Dates: start: 2003, end: 20081001
  10. ALEVE [Concomitant]
     Active Substance: NAPROXEN SODIUM
     Indication: MYALGIA
     Route: 048
     Dates: start: 20080903
  11. FISH OIL [Concomitant]
     Active Substance: FISH OIL
     Dosage: NOT PROVIDED
     Route: 065
  12. CEFALEXIN [Concomitant]
     Indication: SINUSITIS
     Dosage: NOT PROVIDED
     Route: 065
     Dates: start: 20081025
  13. OXYCONTIN [Concomitant]
     Active Substance: OXYCODONE HYDROCHLORIDE
     Indication: BACK PAIN
     Dosage: 20 MG EXTENDED RELEASE, FREQUENCY NOT PROVIDED
     Route: 065
     Dates: start: 2007

REACTIONS (3)
  - Abscess intestinal [Recovered/Resolved]
  - Large intestine perforation [Recovered/Resolved]
  - Appendicitis perforated [Recovered/Resolved]

NARRATIVE: CASE EVENT DATE: 20081104
